FAERS Safety Report 8319618 (Version 3)
Quarter: 2013Q1

REPORT INFORMATION
  Report Type: Report from Study
  Country: JP (occurrence: JP)
  Receive Date: 20120103
  Receipt Date: 20130328
  Transmission Date: 20140127
  Serious: Yes (Life-Threatening)
  Sender: FDA-Public Use
  Company Number: JP-GLAXOSMITHKLINE-B0770234A

PATIENT
  Age: 61 Year
  Sex: Female
  Weight: 48 kg

DRUGS (6)
  1. TYKERB [Suspect]
     Indication: BREAST CANCER
     Route: 048
     Dates: start: 20110222, end: 20110920
  2. XELODA [Suspect]
     Route: 048
     Dates: start: 20110222, end: 20110717
  3. XELODA [Suspect]
     Route: 048
     Dates: start: 20110801, end: 20110920
  4. DECADRON [Suspect]
     Indication: CEREBRAL OEDEMA MANAGEMENT
     Route: 048
     Dates: start: 20110602, end: 20110920
  5. LOBU [Suspect]
     Indication: BACK PAIN
     Route: 048
     Dates: start: 20110817, end: 20110920
  6. ACTONEL [Concomitant]
     Indication: OSTEOPOROSIS
     Route: 048
     Dates: start: 20110817, end: 20110920

REACTIONS (5)
  - Duodenal perforation [Recovering/Resolving]
  - Disseminated intravascular coagulation [Recovered/Resolved]
  - Skin ulcer [Recovered/Resolved]
  - Back pain [Recovered/Resolved]
  - Lumbar vertebral fracture [Recovered/Resolved]
